FAERS Safety Report 5816044-9 (Version None)
Quarter: 2008Q3

REPORT INFORMATION
  Report Type: 
  Country: None (occurrence: None)
  Receive Date: 20080721
  Receipt Date: 20080710
  Transmission Date: 20090109
  Serious: Yes (Death)
  Sender: FDA-Public Use
  Company Number: US-ELI_LILLY_AND_COMPANY-US200807002172

PATIENT
  Age: 45 Year
  Sex: Female

DRUGS (3)
  1. XIGRIS [Suspect]
     Indication: SEPSIS
     Dosage: UNK, UNK
     Route: 042
     Dates: start: 20080703, end: 20080703
  2. DOPAMINE HCL [Concomitant]
     Indication: SEPSIS
  3. ANTIBIOTICS [Concomitant]
     Indication: SEPSIS

REACTIONS (1)
  - DEATH [None]
